FAERS Safety Report 4315673-1 (Version None)
Quarter: 2004Q1

REPORT INFORMATION
  Report Type: 
  Country: None (occurrence: None)
  Receive Date: 20040309
  Receipt Date: 20040227
  Transmission Date: 20041129
  Serious: Yes (Hospitalization)
  Sender: FDA-Public Use
  Company Number: US-SHR-04-021914

PATIENT
  Age: 61 Year
  Sex: Female
  Weight: 58 kg

DRUGS (20)
  1. BETASERON [Suspect]
     Indication: MULTIPLE SCLEROSIS
     Dosage: 8 MIU, EVERY 2D, SUBCUTANEOUS
     Route: 058
     Dates: start: 19960715
  2. DIAZIDE (GLICLAZIDE) [Concomitant]
  3. TRAZODONE HCL [Concomitant]
  4. AMBIEN [Concomitant]
  5. ZOLOFT (SERTRALINE HYDROCHORIDE) [Concomitant]
  6. BACLOFEN [Concomitant]
  7. FOSAMAX [Concomitant]
  8. ALLEGRA [Concomitant]
  9. PREMARIN [Concomitant]
  10. MULTIPLEX (HOMEOPATICS) [Concomitant]
  11. DITROPAN XL [Concomitant]
  12. LIPITOR [Concomitant]
  13. NASONEX [Concomitant]
  14. VITAMIN E [Concomitant]
  15. VITAMIN D [Concomitant]
  16. VITAMIN C [Concomitant]
  17. CALCIUM (CALCIUM) [Concomitant]
  18. FOLIC ACID [Concomitant]
  19. FIBERCON (POLYCARBOPHIL) [Concomitant]
  20. POTASSIUM GLUCONATE (POTASSIUM GLUCONATE) [Concomitant]

REACTIONS (1)
  - BREAST CANCER [None]
